FAERS Safety Report 6274693-0 (Version None)
Quarter: 2009Q3

REPORT INFORMATION
  Report Type: 
  Country: None (occurrence: None)
  Receive Date: 20090721
  Receipt Date: 20070807
  Transmission Date: 20100115
  Serious: Yes (Hospitalization, Other)
  Sender: FDA-Public Use
  Company Number: US-ASTRAZENECA-2007UW02004

PATIENT
  Age: 548 Month
  Sex: Female

DRUGS (15)
  1. SEROQUEL [Suspect]
     Route: 048
     Dates: start: 20030401
  2. SEROQUEL [Suspect]
     Dosage: 100 -200 MG DAILY
     Route: 048
     Dates: start: 20030625
  3. ALLEGRA [Concomitant]
     Dates: start: 20030625
  4. EFFEXOR XR [Concomitant]
     Dosage: 150 - 450 MG DAILY
     Route: 048
     Dates: start: 20030625
  5. HYDROCODONE [Concomitant]
     Dosage: STRENGTH - 5 / 500 MG, 4- 6 HRLY
     Dates: start: 20030625
  6. CYCLOBENZAPRINE [Concomitant]
     Dosage: STRENGTH - 10 MG, DOSE - 40 - 60 MG DAILY
     Dates: start: 20030625
  7. NIFEDIPINE [Concomitant]
     Dates: start: 20030625
  8. ALBUTEROL [Concomitant]
     Dosage: 2 PUFFS AS REQUIRED
     Dates: start: 20030626
  9. TRICOR [Concomitant]
     Route: 048
     Dates: start: 20050702
  10. ABILIFY [Concomitant]
     Route: 048
     Dates: start: 20050702
  11. ZOCOR [Concomitant]
     Route: 048
     Dates: start: 20050809
  12. PREVACID [Concomitant]
     Route: 048
     Dates: start: 20050809
  13. PROTONIX [Concomitant]
     Dates: start: 20050809
  14. LISINOPRIL [Concomitant]
     Dates: start: 20050809
  15. MAXZIDE [Concomitant]
     Dates: start: 20040204

REACTIONS (13)
  - ABDOMINAL PAIN [None]
  - BACK PAIN [None]
  - CELLULITIS [None]
  - COUGH [None]
  - DIABETES MELLITUS INADEQUATE CONTROL [None]
  - DYSPNOEA [None]
  - GOITRE [None]
  - HYPOGLYCAEMIA [None]
  - INSOMNIA [None]
  - PYREXIA [None]
  - RENAL FAILURE CHRONIC [None]
  - TYPE 1 DIABETES MELLITUS [None]
  - UTERINE LEIOMYOMA [None]
